FAERS Safety Report 12924088 (Version 8)
Quarter: 2016Q4

REPORT INFORMATION
  Report Type: Spontaneous
  Country: JP (occurrence: JP)
  Receive Date: 20161108
  Receipt Date: 20161214
  Transmission Date: 20170207
  Serious: Yes (Hospitalization, Congenital Anomaly, Other)
  Sender: FDA-Public Use
  Company Number: PHJP2016JP031755

PATIENT
  Age: 0 Year
  Sex: Female
  Weight: 2.35 kg

DRUGS (2)
  1. PREDONINE [Concomitant]
     Active Substance: PREDNISOLONE\PREDNISOLONE ACETATE\PREDNISOLONE SODIUM SUCCINATE
     Indication: STILL^S DISEASE ADULT ONSET
     Dosage: METRENAL DOSE: 5 MG FROM 07 DEC 2015 TO 08 FEB 2016
     Route: 064
  2. NEORAL [Suspect]
     Active Substance: CYCLOSPORINE
     Indication: FOETAL EXPOSURE DURING PREGNANCY
     Dosage: METRENAL 100 MG, FROM 07 DEC 2015 TO 08 FEB 2016
     Route: 064

REACTIONS (8)
  - Pyrexia [Unknown]
  - Hyper IgM syndrome [Recovering/Resolving]
  - Interleukin level increased [Recovering/Resolving]
  - Histiocytosis haematophagic [Recovering/Resolving]
  - Low birth weight baby [Unknown]
  - Premature baby [Unknown]
  - Foetal exposure during pregnancy [Unknown]
  - Hepatosplenomegaly [Unknown]

NARRATIVE: CASE EVENT DATE: 201512
